FAERS Safety Report 21559073 (Version 1)
Quarter: 2022Q4

REPORT INFORMATION
  Report Type: Spontaneous
  Country: US (occurrence: US)
  Receive Date: 20221107
  Receipt Date: 20221107
  Transmission Date: 20230113
  Serious: No
  Sender: FDA-Public Use
  Company Number: US-VIIV HEALTHCARE LIMITED-US2022AMR155450

PATIENT
  Sex: Male

DRUGS (2)
  1. RILPIVIRINE [Suspect]
     Active Substance: RILPIVIRINE
     Indication: Product used for unknown indication
     Dosage: UNK UNK, Z: EVERY 2 MONTHS, UNK, 600/900 MG
     Route: 065
     Dates: start: 202208
  2. CABOTEGRAVIR [Suspect]
     Active Substance: CABOTEGRAVIR
     Indication: Product used for unknown indication
     Dosage: UNK UNK, Z: EVERY 2 MONTHS, UNK, 600/900 MG
     Route: 065
     Dates: start: 202208

REACTIONS (1)
  - Influenza like illness [Unknown]
